FAERS Safety Report 25766817 (Version 3)
Quarter: 2025Q4

REPORT INFORMATION
  Report Type: Spontaneous
  Country: US (occurrence: US)
  Receive Date: 20250905
  Receipt Date: 20251022
  Transmission Date: 20260117
  Serious: Yes (Death, Hospitalization)
  Sender: TAIHO ONCOLOGY INC
  Company Number: US-TAIHOP-2025-009454

PATIENT
  Age: 70 Year
  Sex: Male
  Weight: 73.03 kg

DRUGS (3)
  1. LONSURF [Suspect]
     Active Substance: TIPIRACIL HYDROCHLORIDE\TRIFLURIDINE
     Indication: Colon cancer
     Dosage: CYCLE UNKNOWN
     Route: 048
  2. LONSURF [Suspect]
     Active Substance: TIPIRACIL HYDROCHLORIDE\TRIFLURIDINE
     Indication: Rectal cancer
  3. LUMAKRAS [Concomitant]
     Active Substance: SOTORASIB
     Indication: Product used for unknown indication

REACTIONS (3)
  - Death [Fatal]
  - Pneumonia [Unknown]
  - Product dose omission in error [Unknown]

NARRATIVE: CASE EVENT DATE: 20250825
